FAERS Safety Report 17736321 (Version 1)
Quarter: 2020Q2

REPORT INFORMATION
  Report Type: Report from Study
  Country: US (occurrence: US)
  Receive Date: 20200501
  Receipt Date: 20200501
  Transmission Date: 20200714
  Serious: Yes (Other)
  Sender: FDA-Public Use
  Company Number: US-BAUSCH-BL-2019-023943

PATIENT
  Age: 72 Year
  Sex: Female
  Weight: 74.46 kg

DRUGS (5)
  1. TARGRETIN [Suspect]
     Active Substance: BEXAROTENE
     Dosage: ONCE DAILY WITH NO ACTIVE SYMPTOM AND TWICE DAILY WITH SYMPTOM
     Route: 061
     Dates: start: 2017, end: 2019
  2. TARGRETIN [Suspect]
     Active Substance: BEXAROTENE
     Route: 061
     Dates: end: 202004
  3. TRIAMCINOLONE [Concomitant]
     Active Substance: TRIAMCINOLONE
     Indication: PRODUCT USED FOR UNKNOWN INDICATION
  4. TARGRETIN [Suspect]
     Active Substance: BEXAROTENE
     Indication: CUTANEOUS T-CELL LYMPHOMA
     Dosage: APPROX (2013 OR 2014)
     Route: 061
  5. HALOBETASOL [Concomitant]
     Active Substance: HALOBETASOL PROPIONATE
     Indication: PRODUCT USED FOR UNKNOWN INDICATION

REACTIONS (3)
  - Insurance issue [Unknown]
  - Cutaneous T-cell lymphoma recurrent [Unknown]
  - Therapy interrupted [Unknown]

NARRATIVE: CASE EVENT DATE: 201906
